FAERS Safety Report 22291437 (Version 1)
Quarter: 2023Q2

REPORT INFORMATION
  Report Type: Spontaneous
  Country: PL (occurrence: PL)
  Receive Date: 20230506
  Receipt Date: 20230506
  Transmission Date: 20230721
  Serious: Yes (Death, Life-Threatening, Hospitalization, Other)
  Sender: FDA-Public Use
  Company Number: PL-UNITED THERAPEUTICS-UNT-2023-012331

PATIENT

DRUGS (1)
  1. REMODULIN [Suspect]
     Active Substance: TREPROSTINIL
     Indication: Pulmonary veno-occlusive disease
     Dosage: UNK, CONTINUING
     Route: 058

REACTIONS (6)
  - Death [Fatal]
  - Dyspnoea at rest [Unknown]
  - Ascites [Unknown]
  - Hypotension [Unknown]
  - Pulmonary veno-occlusive disease [Unknown]
  - Product use in unapproved indication [Unknown]
